FAERS Safety Report 5411135-9 (Version None)
Quarter: 2007Q3

REPORT INFORMATION
  Report Type: 
  Country: None (occurrence: None)
  Receive Date: 20070810
  Receipt Date: 20070730
  Transmission Date: 20080115
  Serious: Yes (Hospitalization)
  Sender: FDA-Public Use
  Company Number: JP-AMGEN-US231730

PATIENT
  Sex: Female
  Weight: 56 kg

DRUGS (17)
  1. ENBREL [Suspect]
     Indication: RHEUMATOID ARTHRITIS
     Route: 058
     Dates: start: 20070213, end: 20070518
  2. PREDNISOLONE [Concomitant]
     Indication: RHEUMATOID ARTHRITIS
     Route: 048
     Dates: start: 20060614
  3. PREDNISOLONE [Concomitant]
     Dates: start: 20060628
  4. PREDNISOLONE [Concomitant]
     Dates: start: 20060725
  5. PREDNISOLONE [Concomitant]
     Dates: start: 20060905
  6. PREDNISOLONE [Concomitant]
     Dates: start: 20070131
  7. GLYBURIDE [Concomitant]
     Indication: DIABETES MELLITUS
     Route: 048
     Dates: start: 20070501, end: 20070517
  8. GLYBURIDE [Concomitant]
     Route: 048
     Dates: start: 20070518, end: 20070529
  9. MESADORIN S [Concomitant]
     Route: 048
     Dates: start: 20070213
  10. ALFAROL [Concomitant]
     Indication: OSTEOPOROSIS
     Route: 048
     Dates: start: 20070213
  11. PROGRAF [Concomitant]
     Indication: RHEUMATOID ARTHRITIS
     Route: 048
     Dates: start: 20060614
  12. PROGRAF [Concomitant]
     Route: 048
     Dates: start: 20060628
  13. PROGRAF [Concomitant]
     Route: 048
     Dates: start: 20060725
  14. PROGRAF [Concomitant]
     Route: 048
     Dates: start: 20060905
  15. PROGRAF [Concomitant]
     Route: 048
     Dates: start: 20070131
  16. PROGRAF [Concomitant]
     Route: 048
     Dates: start: 20070213, end: 20070320
  17. HYPEN [Concomitant]
     Indication: RHEUMATOID ARTHRITIS
     Route: 048
     Dates: start: 20070213

REACTIONS (2)
  - ATYPICAL MYCOBACTERIAL INFECTION [None]
  - HYDROPNEUMOTHORAX [None]
